FAERS Safety Report 19474729 (Version 1)
Quarter: 2021Q2

REPORT INFORMATION
  Report Type: Spontaneous
  Country: US (occurrence: US)
  Receive Date: 20210629
  Receipt Date: 20210629
  Transmission Date: 20210717
  Serious: Yes (Death, Hospitalization, Other)
  Sender: FDA-Public Use
  Company Number: US-ASTRAZENECA-2021A564709

PATIENT
  Age: 865 Month
  Sex: Male
  Weight: 79.4 kg

DRUGS (7)
  1. CALQUENCE [Suspect]
     Active Substance: ACALABRUTINIB
     Indication: MANTLE CELL LYMPHOMA
     Dosage: UNKNOWN DOSE EVERY 12 HOURS
     Route: 048
     Dates: end: 202012
  2. CALQUENCE [Suspect]
     Active Substance: ACALABRUTINIB
     Indication: MANTLE CELL LYMPHOMA
     Dosage: UNKNOWN DOSE EVERY 12 HOURS
     Route: 048
     Dates: start: 201905
  3. CALQUENCE [Suspect]
     Active Substance: ACALABRUTINIB
     Indication: MANTLE CELL LYMPHOMA
     Dosage: UNKNOWN DOSE EVERY 12 HOURS
     Route: 048
     Dates: start: 20200714, end: 202011
  4. CALQUENCE [Suspect]
     Active Substance: ACALABRUTINIB
     Indication: MANTLE CELL LYMPHOMA
     Dosage: UNKNOWN DOSE EVERY 12 HOURS
     Route: 048
     Dates: start: 202103, end: 202103
  5. OXALIPLATIN. [Suspect]
     Active Substance: OXALIPLATIN
     Route: 065
  6. CALQUENCE [Suspect]
     Active Substance: ACALABRUTINIB
     Indication: MANTLE CELL LYMPHOMA
     Dosage: UNKNOWN DOSE EVERY 12 HOURS
     Route: 048
     Dates: end: 202102
  7. VENETOCLAX. [Suspect]
     Active Substance: VENETOCLAX
     Route: 065

REACTIONS (27)
  - Gastrointestinal disorder [Unknown]
  - Skin disorder [Unknown]
  - Illness [Unknown]
  - Weight decreased [Not Recovered/Not Resolved]
  - Metastases to lung [Unknown]
  - Red blood cell count decreased [Not Recovered/Not Resolved]
  - Diarrhoea [Unknown]
  - Vomiting [Unknown]
  - Fall [Unknown]
  - Oxygen saturation decreased [Unknown]
  - Haemoglobin decreased [Not Recovered/Not Resolved]
  - Wound [Recovered/Resolved with Sequelae]
  - Bone marrow myelogram abnormal [Unknown]
  - Alopecia [Unknown]
  - Asthenia [Unknown]
  - Fatigue [Unknown]
  - Skin lesion [Not Recovered/Not Resolved]
  - Night sweats [Unknown]
  - Mantle cell lymphoma recurrent [Unknown]
  - Scar [Not Recovered/Not Resolved]
  - Decreased appetite [Unknown]
  - Leukaemia [Fatal]
  - Pneumonia viral [Recovered/Resolved with Sequelae]
  - Heart rate decreased [Unknown]
  - Oral disorder [Not Recovered/Not Resolved]
  - Feeding disorder [Unknown]
  - Pyrexia [Unknown]

NARRATIVE: CASE EVENT DATE: 201911
